FAERS Safety Report 5250123-2 (Version None)
Quarter: 2007Q1

REPORT INFORMATION
  Report Type: 
  Country: None (occurrence: None)
  Receive Date: 20070228
  Receipt Date: 20060208
  Transmission Date: 20070707
  Serious: No
  Sender: FDA-Public Use
  Company Number: US-GLAXOSMITHKLINE-A0592892A

PATIENT
  Age: 39 Year
  Sex: Female

DRUGS (6)
  1. LAMICTAL [Suspect]
     Dosage: 75MG AT NIGHT
     Route: 048
  2. PROZAC [Concomitant]
  3. XANAX SR [Concomitant]
  4. ACTOS [Concomitant]
  5. GLUCOPHAGE [Concomitant]
  6. XANAX [Concomitant]

REACTIONS (3)
  - ABDOMINAL PAIN UPPER [None]
  - ANXIETY [None]
  - INSOMNIA [None]
